FAERS Safety Report 16784864 (Version 1)
Quarter: 2019Q3

REPORT INFORMATION
  Report Type: Spontaneous
  Country: US (occurrence: US)
  Receive Date: 20190906
  Receipt Date: 20190906
  Transmission Date: 20191005
  Serious: Yes (Life-Threatening)
  Sender: FDA-Public Use
  Company Number: None

PATIENT
  Age: 64 Year
  Sex: Female
  Weight: 85.5 kg

DRUGS (11)
  1. RELIEF VAPE PEN 1:9 CBD:THC [Suspect]
     Active Substance: CANNABIDIOL\DEVICE\HERBALS
     Indication: NEURALGIA
     Dosage: ?          QUANTITY:1 INHALATION(S);?
     Route: 055
     Dates: start: 20181130, end: 20181130
  2. VITAMIN D [Concomitant]
     Active Substance: VITAMIN D NOS
  3. VENLAFAXINE [Concomitant]
     Active Substance: VENLAFAXINE HYDROCHLORIDE
  4. METOPROLOL. [Concomitant]
     Active Substance: METOPROLOL
  5. MEDICAL MARIJUANA [Concomitant]
     Active Substance: CANNABIS SATIVA SUBSP. INDICA TOP
  6. GABAPENTIN. [Concomitant]
     Active Substance: GABAPENTIN
  7. RELIEF VAPE PEN 1:9 CBD:THC [Suspect]
     Active Substance: CANNABIDIOL\DEVICE\HERBALS
     Indication: MULTIPLE SCLEROSIS
     Dosage: ?          QUANTITY:1 INHALATION(S);?
     Route: 055
     Dates: start: 20181130, end: 20181130
  8. TUMERIC [Concomitant]
     Active Substance: HERBALS\TURMERIC
  9. OCREVIS [Concomitant]
  10. SYNTHROID [Concomitant]
     Active Substance: LEVOTHYROXINE SODIUM
  11. ATORVASTATIN [Concomitant]
     Active Substance: ATORVASTATIN

REACTIONS (7)
  - Chest pain [None]
  - Respiratory distress [None]
  - Obstructive airways disorder [None]
  - Cough [None]
  - Nausea [None]
  - Hyperhidrosis [None]
  - Throat irritation [None]

NARRATIVE: CASE EVENT DATE: 20181130
